FAERS Safety Report 6139609-6 (Version None)
Quarter: 2009Q2

REPORT INFORMATION
  Report Type: 
  Country: None (occurrence: None)
  Receive Date: 20090401
  Receipt Date: 20090325
  Transmission Date: 20091009
  Serious: Yes (Death, Other)
  Sender: FDA-Public Use
  Company Number: FR-ROXANE LABORATORIES, INC.-2009-RO-00290RO

PATIENT
  Age: 47 Year
  Sex: Female

DRUGS (14)
  1. PREDNISONE [Suspect]
     Indication: AUTOIMMUNE DISORDER
     Dosage: 20MG
     Dates: start: 19950601
  2. PREDNISONE [Suspect]
     Dosage: 15MG
     Dates: start: 20021101
  3. PREDNISONE [Suspect]
     Dosage: 20MG
  4. PREDNISONE [Suspect]
     Dosage: 17MG
  5. METHOTREXATE [Suspect]
     Indication: STEROID WITHDRAWAL SYNDROME
     Dates: start: 19960201
  6. CYCLOPHOSPHAMIDE [Suspect]
     Dates: start: 20041201
  7. STEROIDS [Suspect]
     Indication: AUTOIMMUNE DISORDER
  8. STEROIDS [Suspect]
     Dosage: 30MG
  9. STEROIDS [Suspect]
     Dosage: 20MG
  10. IMMUNOGLOBULINS [Suspect]
     Indication: MYOSITIS
     Route: 042
     Dates: start: 20001201
  11. IMMUNOGLOBULINS [Suspect]
     Route: 042
     Dates: start: 20021101
  12. RITUXIMAB [Suspect]
     Indication: POLYMYOSITIS
     Dates: start: 20030901
  13. RITUXIMAB [Suspect]
     Indication: PEMPHIGUS
  14. COLCHICINE [Suspect]
     Dates: start: 20041201

REACTIONS (9)
  - B-CELL LYMPHOMA [None]
  - B-LYMPHOCYTE COUNT DECREASED [None]
  - DRUG INEFFECTIVE [None]
  - EPSTEIN-BARR VIRUS INFECTION [None]
  - MUSCLE ATROPHY [None]
  - MUSCLE ENZYME INCREASED [None]
  - PEMPHIGUS [None]
  - RENAL AMYLOIDOSIS [None]
  - SEPTIC SHOCK [None]
